FAERS Safety Report 8219403-2 (Version None)
Quarter: 2012Q1

REPORT INFORMATION
  Report Type: 
  Country: None (occurrence: None)
  Receive Date: 20120319
  Receipt Date: 20120314
  Transmission Date: 20120608
  Serious: Yes (Disabling, Other)
  Sender: FDA-Public Use
  Company Number: US-PFIZER INC-2011304456

PATIENT
  Sex: Female

DRUGS (1)
  1. CHANTIX [Suspect]
     Indication: SMOKING CESSATION THERAPY
     Dosage: UNK
     Dates: start: 20090127, end: 20090401

REACTIONS (7)
  - SUICIDE ATTEMPT [None]
  - ANXIETY [None]
  - AGGRESSION [None]
  - INSOMNIA [None]
  - DEPRESSION [None]
  - BIPOLAR DISORDER [None]
  - ABNORMAL DREAMS [None]
